FAERS Safety Report 6978862-3 (Version None)
Quarter: 2010Q3

REPORT INFORMATION
  Report Type: 
  Country: None (occurrence: None)
  Receive Date: 20100913
  Receipt Date: 20100906
  Transmission Date: 20110219
  Serious: Yes (Hospitalization, Other)
  Sender: FDA-Public Use
  Company Number: BR-SANOFI-AVENTIS-2010SA053928

PATIENT
  Sex: Male
  Weight: 68 kg

DRUGS (3)
  1. LANTUS [Suspect]
     Indication: TYPE 2 DIABETES MELLITUS
     Route: 058
     Dates: start: 20020101
  2. OPTIPEN [Suspect]
  3. NOVOLIN 70/30 [Concomitant]
     Indication: TYPE 2 DIABETES MELLITUS
     Dosage: ACCORDING TO GLYCEMIA
     Route: 058
     Dates: start: 20040101

REACTIONS (5)
  - COMA [None]
  - GAIT DISTURBANCE [None]
  - HYPERTENSION [None]
  - HYPOGLYCAEMIC UNCONSCIOUSNESS [None]
  - RENAL FAILURE [None]
